FAERS Safety Report 19891778 (Version 1)
Quarter: 2021Q3

REPORT INFORMATION
  Report Type: Report from Study
  Country: US (occurrence: US)
  Receive Date: 20210928
  Receipt Date: 20210928
  Transmission Date: 20211014
  Serious: Yes (Death)
  Sender: FDA-Public Use
  Company Number: US-TASMAN PHARMA, INC.-2021TSM00257

PATIENT
  Age: 83 Year
  Sex: Male

DRUGS (1)
  1. CLOZAPINE. [Suspect]
     Active Substance: CLOZAPINE

REACTIONS (1)
  - Death [Fatal]

NARRATIVE: CASE EVENT DATE: 202109
